FAERS Safety Report 7387579-5 (Version None)
Quarter: 2011Q1

REPORT INFORMATION
  Report Type: 
  Country: None (occurrence: None)
  Receive Date: 20110331
  Receipt Date: 20110324
  Transmission Date: 20110831
  Serious: Yes (Life-Threatening, Hospitalization)
  Sender: FDA-Public Use
  Company Number: FR-GILEAD-2011-0037844

PATIENT
  Sex: Male

DRUGS (3)
  1. TRUVADA [Suspect]
     Indication: HIV INFECTION
     Dates: start: 20060101, end: 20110214
  2. KALETRA [Concomitant]
     Indication: HIV INFECTION
     Route: 048
     Dates: start: 20060101, end: 20110214
  3. STAGID [Concomitant]
     Dates: start: 20100901, end: 20101201

REACTIONS (6)
  - ARTHRALGIA [None]
  - GAMMA-GLUTAMYLTRANSFERASE INCREASED [None]
  - FANCONI SYNDROME ACQUIRED [None]
  - HYPOKALAEMIA [None]
  - WEIGHT DECREASED [None]
  - RENAL IMPAIRMENT [None]
